FAERS Safety Report 23185260 (Version 1)
Quarter: 2023Q4

REPORT INFORMATION
  Report Type: Spontaneous
  Country: US (occurrence: US)
  Receive Date: 20231115
  Receipt Date: 20231115
  Transmission Date: 20240109
  Serious: Yes (Other)
  Sender: FDA-Public Use
  Company Number: US-QUAGEN-2023QUALIT00327

PATIENT
  Age: 61 Year
  Sex: Male
  Weight: 70 kg

DRUGS (1)
  1. LIDOCAINE [Suspect]
     Active Substance: LIDOCAINE
     Indication: Local anaesthesia
     Dosage: 20CC OF 2% LIDOCAINE(100MG/5CC) A TOTAL 400MG
     Route: 058

REACTIONS (2)
  - Seizure like phenomena [Unknown]
  - Local anaesthetic systemic toxicity [Unknown]
